FAERS Safety Report 4784189-0 (Version None)
Quarter: 2005Q3

REPORT INFORMATION
  Report Type: 
  Country: None (occurrence: None)
  Receive Date: 20050928
  Receipt Date: 20050913
  Transmission Date: 20060218
  Serious: Yes (Death, Other)
  Sender: FDA-Public Use
  Company Number: 2005-DE-03694GD

PATIENT
  Sex: Female

DRUGS (3)
  1. DILTIAZEM HYDROCHLORIDE [Suspect]
     Indication: PULMONARY HYPERTENSION
  2. FUROSEMIDE [Suspect]
     Indication: PULMONARY HYPERTENSION
  3. ALBUMIN (HUMAN) [Suspect]
     Indication: PULMONARY HYPERTENSION

REACTIONS (15)
  - ABDOMINAL DISCOMFORT [None]
  - ASCITES [None]
  - CONDITION AGGRAVATED [None]
  - FATIGUE [None]
  - GALLOP RHYTHM PRESENT [None]
  - GASTROINTESTINAL HAEMORRHAGE [None]
  - HISTOLOGY ABNORMAL [None]
  - LUNG DISORDER [None]
  - OEDEMA PERIPHERAL [None]
  - PULMONARY HYPERTENSION [None]
  - PULMONARY THROMBOSIS [None]
  - QUADRIPLEGIA [None]
  - SPINAL CORD HAEMORRHAGE [None]
  - SPINAL CORD ISCHAEMIA [None]
  - SYNCOPE [None]
